FAERS Safety Report 20656396 (Version 1)
Quarter: 2022Q1

REPORT INFORMATION
  Report Type: Other
  Country: CA (occurrence: CA)
  Receive Date: 20220331
  Receipt Date: 20220331
  Transmission Date: 20220423
  Serious: Yes (Other)
  Sender: FDA-Public Use
  Company Number: CA-CELLTRION INC.-2022CA003529

PATIENT

DRUGS (12)
  1. RITUXIMAB [Suspect]
     Active Substance: RITUXIMAB
     Indication: Granulomatosis with polyangiitis
     Dosage: 500 MILLIGRAM
     Route: 042
  2. CYCLOSPORINE [Concomitant]
     Active Substance: CYCLOSPORINE
     Dosage: 75 MILLIGRAM, 2 EVERY 1 DAYS
     Route: 065
  3. CYCLOSPORINE [Concomitant]
     Active Substance: CYCLOSPORINE
     Dosage: 100 MILLIGRAM, 2 EVERY 1 DAYS
     Route: 065
  4. CYCLOSPORINE [Concomitant]
     Active Substance: CYCLOSPORINE
     Dosage: UNK
  5. CLOBAZAM [Concomitant]
     Active Substance: CLOBAZAM
     Dosage: 100 MILLIGRAM, 2 EVERY 1 DAYS
  6. KEPPRA [Concomitant]
     Active Substance: LEVETIRACETAM
     Dosage: 1.5 MILLIGRAM, 2 EVERY 1 DAYS
  7. LACOSAMIDE [Concomitant]
     Active Substance: LACOSAMIDE
  8. METOPROLOL [Concomitant]
     Active Substance: METOPROLOL
     Indication: Blood pressure abnormal
     Route: 065
  9. NIFEDIPINE [Concomitant]
     Active Substance: NIFEDIPINE
     Indication: Blood pressure abnormal
     Route: 065
  10. NITROGLYCERIN [Concomitant]
     Active Substance: NITROGLYCERIN
     Indication: Blood pressure abnormal
     Route: 062
  11. PHENYTOIN [Concomitant]
     Active Substance: PHENYTOIN
     Dosage: 400 MILLIGRAM, 1 EVERY 1 DAYS
  12. PREDNISONE [Concomitant]
     Active Substance: PREDNISONE
     Dosage: 10 MILLIGRAM, 1 EVERY 1 DAYS
     Route: 065

REACTIONS (10)
  - C-reactive protein increased [Unknown]
  - Depressed level of consciousness [Unknown]
  - Disease recurrence [Unknown]
  - Granulomatosis with polyangiitis [Unknown]
  - Hip fracture [Unknown]
  - Asthenia [Unknown]
  - Seizure [Unknown]
  - Urinary tract infection [Unknown]
  - Off label use [Unknown]
  - Intentional product use issue [Unknown]
